FAERS Safety Report 10098520 (Version 2)
Quarter: 2014Q2

REPORT INFORMATION
  Report Type: Report from Study
  Country: US (occurrence: US)
  Receive Date: 20140423
  Receipt Date: 20140423
  Transmission Date: 20141212
  Serious: Yes (Death, Other)
  Sender: FDA-Public Use
  Company Number: US-ABBVIE-12P-163-0966392-00

PATIENT
  Age: 60 Year
  Sex: Female
  Weight: 74.91 kg

DRUGS (2)
  1. HUMIRA 40 MG/0.8 ML PEN [Suspect]
     Indication: RHEUMATOID ARTHRITIS
     Dates: start: 20110525, end: 20120821
  2. METHOTREXATE [Concomitant]
     Indication: PRODUCT USED FOR UNKNOWN INDICATION
     Dosage: DOSE: 7/WK
     Dates: start: 200811, end: 20120615

REACTIONS (5)
  - Waist circumference increased [Fatal]
  - Neoplasm malignant [Fatal]
  - Fatigue [Fatal]
  - Weight decreased [Fatal]
  - Jaundice [Fatal]
